FAERS Safety Report 6761725-6 (Version None)
Quarter: 2010Q2

REPORT INFORMATION
  Report Type: 
  Country: None (occurrence: None)
  Receive Date: 20100429
  Receipt Date: 20100415
  Transmission Date: 20101027
  Serious: No
  Sender: FDA-Public Use
  Company Number: CA-144957

PATIENT
  Sex: Female
  Weight: 108 kg

DRUGS (6)
  1. WINRHO [Suspect]
     Indication: IDIOPATHIC THROMBOCYTOPENIC PURPURA
     Dosage: (37.02 ?G/KG INTRAVENOUS), (13.88 ?G/KG INTRAVENOUS)
     Route: 042
     Dates: start: 20100407, end: 20100407
  2. WINRHO [Suspect]
     Indication: IDIOPATHIC THROMBOCYTOPENIC PURPURA
     Dosage: (37.02 ?G/KG INTRAVENOUS), (13.88 ?G/KG INTRAVENOUS)
     Route: 042
     Dates: start: 20100407, end: 20100407
  3. WINRHO [Suspect]
  4. ENALAPRIL MALEATE [Concomitant]
  5. AMLODIPINE [Concomitant]
  6. ATORVASTATIN [Concomitant]

REACTIONS (4)
  - CHILLS [None]
  - HEADACHE [None]
  - NECK PAIN [None]
  - PAIN IN EXTREMITY [None]
